FAERS Safety Report 4644751-2 (Version None)
Quarter: 2005Q2

REPORT INFORMATION
  Report Type: 
  Country: None (occurrence: None)
  Receive Date: 20050426
  Receipt Date: 20050415
  Transmission Date: 20051028
  Serious: Yes (Hospitalization)
  Sender: FDA-Public Use
  Company Number: 200511365FR

PATIENT
  Age: 8 Day
  Sex: Female
  Weight: 3.8 kg

DRUGS (12)
  1. LASIX [Suspect]
     Indication: CARDIAC FAILURE
     Route: 042
     Dates: start: 20050316, end: 20050324
  2. GARDENALE [Concomitant]
     Indication: CONVULSION
     Route: 042
     Dates: start: 20050316, end: 20050317
  3. CLAFORAN [Concomitant]
     Dates: start: 20050316, end: 20050319
  4. NETROMYCIN [Concomitant]
     Dates: start: 20050316, end: 20050318
  5. MIDAZOLAM HCL [Concomitant]
     Dates: start: 20050316, end: 20050318
  6. DOPAMINE [Concomitant]
     Dates: start: 20050316, end: 20050318
  7. CLAMOXYL [Concomitant]
     Dates: start: 20050316, end: 20050321
  8. VENTOLIN [Concomitant]
     Route: 064
     Dates: end: 20050316
  9. TRANXENE [Concomitant]
     Route: 064
     Dates: end: 20050316
  10. ANAFRANIL CAP [Concomitant]
     Route: 064
     Dates: end: 20050316
  11. BROMAZEPAM BIOGALENIQUE [Concomitant]
     Route: 064
     Dates: end: 20050316
  12. INSULIN NOS [Concomitant]

REACTIONS (1)
  - ELECTROCARDIOGRAM QT PROLONGED [None]
